FAERS Safety Report 8029166-1 (Version None)
Quarter: 2012Q1

REPORT INFORMATION
  Report Type: 
  Country: None (occurrence: None)
  Receive Date: 20120106
  Receipt Date: 20120104
  Transmission Date: 20120608
  Serious: Yes (Death, Hospitalization)
  Sender: FDA-Public Use
  Company Number: PHHY2011BR67946

PATIENT
  Sex: Female

DRUGS (1)
  1. EXELON [Suspect]
     Indication: DEMENTIA ALZHEIMER'S TYPE
     Dosage: 1 DF, BID (ONE PATCH IN THE MORNING AND 1 PATCH AT NIGHT)
     Route: 062

REACTIONS (3)
  - CEREBROVASCULAR ACCIDENT [None]
  - HERPES ZOSTER INFECTION NEUROLOGICAL [None]
  - WRONG TECHNIQUE IN DRUG USAGE PROCESS [None]
